FAERS Safety Report 18376143 (Version 1)
Quarter: 2020Q4

REPORT INFORMATION
  Report Type: Spontaneous
  Country: US (occurrence: US)
  Receive Date: 20201010
  Receipt Date: 20201010
  Transmission Date: 20210114
  Serious: Yes (Other)
  Sender: FDA-Public Use
  Company Number: None

PATIENT
  Age: 62 Year
  Sex: Female
  Weight: 76.05 kg

DRUGS (5)
  1. MELOXICAM. [Concomitant]
     Active Substance: MELOXICAM
  2. OMEGA 3 [Concomitant]
     Active Substance: OMEGA-3 FATTY ACIDS
  3. B12 W TESTERTONE INJECTION [Concomitant]
  4. VITAMIN D3 [Concomitant]
     Active Substance: CHOLECALCIFEROL
  5. NATURE-THROID [Suspect]
     Active Substance: THYROID, PORCINE
     Indication: HYPOTHYROIDISM
     Route: 048
     Dates: start: 20170115, end: 20201008

REACTIONS (11)
  - Vertigo [None]
  - Nausea [None]
  - Impaired work ability [None]
  - Diarrhoea [None]
  - Fatigue [None]
  - Dry skin [None]
  - Heart rate decreased [None]
  - Vomiting [None]
  - Presyncope [None]
  - Dyspnoea [None]
  - Hyperkeratosis [None]

NARRATIVE: CASE EVENT DATE: 20201008
